FAERS Safety Report 20628745 (Version 1)
Quarter: 2022Q1

REPORT INFORMATION
  Report Type: Report from Study
  Country: GB (occurrence: GB)
  Receive Date: 20220323
  Receipt Date: 20220323
  Transmission Date: 20220423
  Serious: Yes (Other)
  Sender: FDA-Public Use
  Company Number: GB-JNJFOC-20190219937

PATIENT
  Age: 58 Year
  Sex: Female
  Weight: 84 kg

DRUGS (6)
  1. TREMFYA [Suspect]
     Active Substance: GUSELKUMAB
     Indication: Psoriasis
     Dosage: WEEK 0, WEEK 4 AND 8 WEEKLY THEREAFTER
     Route: 058
     Dates: start: 20180913
  2. ASPIRIN [Concomitant]
     Active Substance: ASPIRIN
     Indication: Myocardial infarction
  3. BISOPROLOL [Concomitant]
     Active Substance: BISOPROLOL
  4. OMEPRAZOLE [Concomitant]
     Active Substance: OMEPRAZOLE
     Indication: Hiatus hernia
  5. RAMIPRIL [Concomitant]
     Active Substance: RAMIPRIL
     Indication: Myocardial infarction
  6. SIMVASTATIN [Concomitant]
     Active Substance: SIMVASTATIN
     Indication: Myocardial infarction

REACTIONS (3)
  - Pneumonia [Recovered/Resolved]
  - Tonsillitis [Unknown]
  - Condition aggravated [Unknown]

NARRATIVE: CASE EVENT DATE: 20190202
